FAERS Safety Report 8082629-5 (Version None)
Quarter: 2012Q1

REPORT INFORMATION
  Report Type: 
  Country: None (occurrence: None)
  Receive Date: 20120127
  Receipt Date: 20110215
  Transmission Date: 20120608
  Serious: No
  Sender: FDA-Public Use
  Company Number: US-ABBOTT-11P-163-0707220-00

PATIENT
  Sex: Male
  Weight: 83.99 kg

DRUGS (3)
  1. HUMIRA [Suspect]
     Indication: PSORIASIS
     Route: 058
  2. CRESTOR [Concomitant]
     Indication: BLOOD CHOLESTEROL INCREASED
  3. LOVAZA [Concomitant]
     Indication: BLOOD CHOLESTEROL INCREASED

REACTIONS (10)
  - SINUSITIS [None]
  - COUGH [None]
  - ASTHENIA [None]
  - PULMONARY CONGESTION [None]
  - RHINORRHOEA [None]
  - TOOTHACHE [None]
  - PRURITUS [None]
  - HEADACHE [None]
  - FACIAL PAIN [None]
  - EXTERNAL EAR DISORDER [None]
